FAERS Safety Report 8152729 (Version 2)
Quarter: 2017Q3

REPORT INFORMATION
  Report Type: Spontaneous
  Country: FR (occurrence: FR)
  Receive Date: 20110922
  Receipt Date: 20170804
  Transmission Date: 20171128
  Serious: Yes (Other)
  Sender: FDA-Public Use
  Company Number: FR-BRISTOL-MYERS SQUIBB COMPANY-16055675

PATIENT
  Age: 58 Year
  Sex: Female

DRUGS (1)
  1. ABATACEPT [Suspect]
     Active Substance: ABATACEPT
     Indication: RHEUMATOID ARTHRITIS
     Dosage: 750 MG, QCYCLE
     Route: 042
     Dates: start: 200808

REACTIONS (1)
  - Guttate psoriasis [Recovered/Resolved]
